FAERS Safety Report 20015453 (Version 1)
Quarter: 2021Q4

REPORT INFORMATION
  Report Type: Spontaneous
  Country: US (occurrence: None)
  Receive Date: 20211030
  Receipt Date: 20211030
  Transmission Date: 20220303
  Serious: No
  Sender: FDA-Public Use
  Company Number: None

PATIENT
  Age: 55 Year
  Sex: Female
  Weight: 90 kg

DRUGS (17)
  1. NUCALA [Suspect]
     Active Substance: MEPOLIZUMAB
     Indication: Asthma
     Dosage: OTHER FREQUENCY : MONTHLY;?
     Route: 058
  2. SYNTHROID [Suspect]
     Active Substance: LEVOTHYROXINE SODIUM
  3. ELIQUIS [Suspect]
     Active Substance: APIXABAN
  4. METFORMIN [Suspect]
     Active Substance: METFORMIN HYDROCHLORIDE
  5. HYDRALAZINE [Suspect]
     Active Substance: HYDRALAZINE HYDROCHLORIDE
  6. PROCARDIA [Suspect]
     Active Substance: NIFEDIPINE
  7. LASIX [Suspect]
     Active Substance: FUROSEMIDE
  8. CYMBALTA [Suspect]
     Active Substance: DULOXETINE HYDROCHLORIDE
  9. ZANAFLEX [Suspect]
     Active Substance: TIZANIDINE HYDROCHLORIDE
  10. BYSTOLIC [Suspect]
     Active Substance: NEBIVOLOL HYDROCHLORIDE
  11. HYDROCHLOROTHIAZIDE [Suspect]
     Active Substance: HYDROCHLOROTHIAZIDE
  12. BREZTRI [Suspect]
     Active Substance: BUDESONIDE\FORMOTEROL\GLYCOPYRROLATE
  13. PROAIR HFA [Suspect]
     Active Substance: ALBUTEROL SULFATE
  14. ALBUTEROL [Suspect]
     Active Substance: ALBUTEROL
  15. BACTRIM DS [Suspect]
     Active Substance: SULFAMETHOXAZOLE\TRIMETHOPRIM
  16. NUCALA [Suspect]
     Active Substance: MEPOLIZUMAB
  17. METRONIDAZOLE [Suspect]
     Active Substance: METRONIDAZOLE

REACTIONS (2)
  - Herpes zoster [None]
  - Rash [None]

NARRATIVE: CASE EVENT DATE: 20210802
